FAERS Safety Report 16493445 (Version 3)
Quarter: 2020Q1

REPORT INFORMATION
  Report Type: Report from Study
  Country: US (occurrence: US)
  Receive Date: 20190628
  Receipt Date: 20200122
  Transmission Date: 20200409
  Serious: Yes (Hospitalization)
  Sender: FDA-Public Use
  Company Number: US-ROCHE-2345672

PATIENT
  Sex: Male

DRUGS (10)
  1. BROVANA [Concomitant]
     Active Substance: ARFORMOTEROL TARTRATE
  2. TORSEMIDE. [Concomitant]
     Active Substance: TORSEMIDE
  3. HYDROMORPHONE [Concomitant]
     Active Substance: HYDROMORPHONE
  4. ESBRIET [Suspect]
     Active Substance: PIRFENIDONE
     Indication: IDIOPATHIC PULMONARY FIBROSIS
     Route: 048
     Dates: start: 20180810
  5. AMITRIPTYLINE [Concomitant]
     Active Substance: AMITRIPTYLINE
  6. IPRATROPIUM [Concomitant]
     Active Substance: IPRATROPIUM
  7. PREDNISONE. [Concomitant]
     Active Substance: PREDNISONE
  8. LOSARTAN POTASSIUM. [Concomitant]
     Active Substance: LOSARTAN POTASSIUM
  9. GABAPENTIN. [Concomitant]
     Active Substance: GABAPENTIN
  10. PANTOPRAZOLE [Concomitant]
     Active Substance: PANTOPRAZOLE

REACTIONS (2)
  - Respiratory failure [Unknown]
  - Pneumonia [Unknown]
